FAERS Safety Report 19621608 (Version 1)
Quarter: 2021Q3

REPORT INFORMATION
  Report Type: Spontaneous
  Country: ES (occurrence: ES)
  Receive Date: 20210728
  Receipt Date: 20210728
  Transmission Date: 20211014
  Serious: Yes (Other)
  Sender: FDA-Public Use
  Company Number: NVSC2021ES168733

PATIENT

DRUGS (1)
  1. TACROLIMUS. [Suspect]
     Active Substance: TACROLIMUS
     Indication: AUTOIMMUNE HEPATITIS
     Dosage: SECOND?LINE THERAPY
     Route: 065

REACTIONS (3)
  - Neuropathy peripheral [Unknown]
  - Ototoxicity [Unknown]
  - Product use in unapproved indication [Unknown]
